FAERS Safety Report 9520488 (Version 2)
Quarter: 2013Q3

REPORT INFORMATION
  Report Type: Report from Study
  Country: MX (occurrence: MX)
  Receive Date: 20130913
  Receipt Date: 20130913
  Transmission Date: 20140515
  Serious: Yes (Other)
  Sender: FDA-Public Use
  Company Number: MX-ROCHE-1235735

PATIENT
  Age: 41 Year
  Sex: Female
  Weight: 54 kg

DRUGS (4)
  1. XELODA [Suspect]
     Indication: BREAST CANCER
     Route: 048
     Dates: start: 201208, end: 20130607
  2. XELODA [Suspect]
     Route: 048
     Dates: start: 20130608
  3. XELODA [Suspect]
     Route: 048
     Dates: start: 20130805, end: 20130819
  4. LAPATINIB [Suspect]
     Indication: BREAST CANCER
     Route: 048
     Dates: start: 201303

REACTIONS (4)
  - Drug-induced liver injury [Not Recovered/Not Resolved]
  - Dermatitis [Not Recovered/Not Resolved]
  - Abdominal pain [Not Recovered/Not Resolved]
  - Palmar-plantar erythrodysaesthesia syndrome [Not Recovered/Not Resolved]
